FAERS Safety Report 16059375 (Version 2)
Quarter: 2019Q2

REPORT INFORMATION
  Report Type: Report from Study
  Country: US (occurrence: US)
  Receive Date: 20190311
  Receipt Date: 20190530
  Transmission Date: 20190711
  Serious: Yes (Hospitalization, Other)
  Sender: FDA-Public Use
  Company Number: US-GILEAD-2019-0395838

PATIENT
  Age: 47 Year
  Sex: Male
  Weight: 73.9 kg

DRUGS (13)
  1. CHOLECALCIFEROL [Concomitant]
     Active Substance: CHOLECALCIFEROL
  2. AMBRISENTAN [Suspect]
     Active Substance: AMBRISENTAN
     Indication: PORTAL HYPERTENSION
  3. OXYGEN. [Concomitant]
     Active Substance: OXYGEN
  4. SOLU-MEDROL [Concomitant]
     Active Substance: METHYLPREDNISOLONE SODIUM SUCCINATE
  5. PANTOPRAZOLE [Concomitant]
     Active Substance: PANTOPRAZOLE
  6. TYVASO [Concomitant]
     Active Substance: TREPROSTINIL
  7. CIPROFLOXACIN. [Concomitant]
     Active Substance: CIPROFLOXACIN
  8. THYMOGLOBULIN [Concomitant]
     Active Substance: LAPINE T-LYMPHOCYTE IMMUNE GLOBULIN
  9. AMBRISENTAN [Suspect]
     Active Substance: AMBRISENTAN
     Indication: PULMONARY ARTERIAL HYPERTENSION
     Dosage: 10 MG, QD
     Route: 065
     Dates: start: 20170614, end: 201902
  10. REVATIO [Concomitant]
     Active Substance: SILDENAFIL CITRATE
  11. LACTULOSE. [Concomitant]
     Active Substance: LACTULOSE
  12. VELETRI [Concomitant]
     Active Substance: EPOPROSTENOL
  13. SILDENAFIL. [Concomitant]
     Active Substance: SILDENAFIL

REACTIONS (2)
  - End stage renal disease [Recovered/Resolved]
  - Cirrhosis alcoholic [Recovered/Resolved]

NARRATIVE: CASE EVENT DATE: 20190205
